FAERS Safety Report 19983192 (Version 2)
Quarter: 2021Q4

REPORT INFORMATION
  Report Type: Spontaneous
  Country: US (occurrence: US)
  Receive Date: 20211021
  Receipt Date: 20211028
  Transmission Date: 20220303
  Serious: Yes (Hospitalization)
  Sender: FDA-Public Use
  Company Number: US-TEVA-2021-US-1966654

PATIENT
  Age: 33 Year
  Sex: Female

DRUGS (9)
  1. DDAVP [Suspect]
     Active Substance: DESMOPRESSIN ACETATE
     Indication: Polyuria
     Dosage: 1MCG ADMINISTERED FEW DOSES.
     Route: 042
  2. LABETALOL [Suspect]
     Active Substance: LABETALOL\LABETALOL HYDROCHLORIDE
     Indication: Hypertension
     Dosage: 800 MILLIGRAM DAILY;
     Route: 065
  3. NIFEDIPINE [Suspect]
     Active Substance: NIFEDIPINE
     Indication: Hypertension
     Dosage: 60 MILLIGRAM DAILY;
     Route: 065
  4. NIFEDIPINE [Suspect]
     Active Substance: NIFEDIPINE
     Dosage: 30 MILLIGRAM DAILY;
     Route: 065
  5. POTASSIUM CHLORIDE [Suspect]
     Active Substance: POTASSIUM CHLORIDE
     Indication: Hypokalaemia
     Dosage: 60MEQ
     Route: 048
  6. POTASSIUM CHLORIDE [Suspect]
     Active Substance: POTASSIUM CHLORIDE
     Dosage: 40MEQ
     Route: 065
  7. AMILORIDE [Suspect]
     Active Substance: AMILORIDE
     Indication: Hypokalaemia
     Dosage: 10 MILLIGRAM DAILY;
     Route: 065
  8. ACETAMINOPHEN\BUTABARBITAL\CAFFEINE [Suspect]
     Active Substance: ACETAMINOPHEN\BUTABARBITAL\CAFFEINE
     Indication: Headache
     Dosage: SHE ADMINISTERED 90TABLETS WITHIN 2 TO 3 WEEKS.
     Route: 048
  9. POTASSIUM CHLORIDE [Suspect]
     Active Substance: POTASSIUM CHLORIDE
     Indication: Hypokalaemia
     Dosage: 60MEQ
     Route: 042

REACTIONS (3)
  - Hyponatraemia [Unknown]
  - Maternal exposure during pregnancy [Unknown]
  - Live birth [Unknown]
